FAERS Safety Report 21627732 (Version 2)
Quarter: 2022Q4

REPORT INFORMATION
  Report Type: Spontaneous
  Country: IT (occurrence: IT)
  Receive Date: 20221122
  Receipt Date: 20221123
  Transmission Date: 20230113
  Serious: Yes (Life-Threatening, Hospitalization, Other)
  Sender: FDA-Public Use
  Company Number: IT-MLMSERVICE-20221103-3898949-1

PATIENT
  Age: 6 Decade
  Sex: Male

DRUGS (8)
  1. CYTARABINE [Suspect]
     Active Substance: CYTARABINE
     Indication: Bone marrow conditioning regimen
     Dosage: UNK
     Dates: start: 201210, end: 2012
  2. CYTARABINE [Suspect]
     Active Substance: CYTARABINE
     Indication: Mantle cell lymphoma
  3. ETOPOSIDE [Suspect]
     Active Substance: ETOPOSIDE
     Indication: Bone marrow conditioning regimen
     Dosage: UNK
     Dates: start: 201210, end: 2012
  4. ETOPOSIDE [Suspect]
     Active Substance: ETOPOSIDE
     Indication: Mantle cell lymphoma
  5. FOTEMUSTINE [Suspect]
     Active Substance: FOTEMUSTINE
     Indication: Bone marrow conditioning regimen
     Dosage: UNK
     Dates: start: 201210, end: 2012
  6. FOTEMUSTINE [Suspect]
     Active Substance: FOTEMUSTINE
     Indication: Mantle cell lymphoma
  7. MELPHALAN [Suspect]
     Active Substance: MELPHALAN
     Indication: Bone marrow conditioning regimen
     Dosage: UNK
     Dates: start: 201210, end: 2012
  8. MELPHALAN [Suspect]
     Active Substance: MELPHALAN
     Indication: Mantle cell lymphoma

REACTIONS (7)
  - Neutropenia [Recovered/Resolved]
  - Thrombocytopenia [Recovered/Resolved]
  - Hypovolaemic shock [Recovered/Resolved]
  - Hypotension [Recovered/Resolved]
  - Anaemia [Recovered/Resolved]
  - Abdominal pain [Recovered/Resolved]
  - Presyncope [Recovered/Resolved]

NARRATIVE: CASE EVENT DATE: 20121001
